FAERS Safety Report 5341632-6 (Version None)
Quarter: 2007Q2

REPORT INFORMATION
  Report Type: 
  Country: None (occurrence: None)
  Receive Date: 20070529
  Receipt Date: 20070529
  Transmission Date: 20071010
  Serious: Yes (Other)
  Sender: FDA-Public Use
  Company Number: None

PATIENT
  Age: 43 Year
  Sex: Female
  Weight: 56.6996 kg

DRUGS (1)
  1. LEVAQUIN [Suspect]
     Indication: PNEUMONIA
     Dosage: 1 TAB DAILY PO
     Route: 048
     Dates: start: 20070426, end: 20070429

REACTIONS (3)
  - DIZZINESS [None]
  - HALLUCINATION [None]
  - SLEEP TERROR [None]
